FAERS Safety Report 9492325 (Version 1)
Quarter: 2013Q3

REPORT INFORMATION
  Report Type: Spontaneous
  Country: SE (occurrence: SE)
  Receive Date: 20130830
  Receipt Date: 20130830
  Transmission Date: 20140515
  Serious: Yes (Hospitalization, Other)
  Sender: FDA-Public Use
  Company Number: PHHY2013SE091212

PATIENT
  Age: 60 Year
  Sex: Female

DRUGS (7)
  1. VALACICLOVIR [Suspect]
     Indication: HERPES VIRUS INFECTION
     Dosage: 6 G, DAILY
  2. VALACICLOVIR [Suspect]
     Dosage: 4 G, DAILY
  3. VALACICLOVIR [Suspect]
     Dosage: 2 G, DAILY
  4. AMPICILLIN [Concomitant]
     Route: 042
  5. BETAMETHASONE [Concomitant]
  6. ACICLOVIR [Suspect]
     Route: 048
  7. ACICLOVIR [Suspect]
     Route: 042

REACTIONS (8)
  - Neuropsychiatric syndrome [Recovered/Resolved]
  - Renal impairment [Unknown]
  - Toxicity to various agents [Unknown]
  - Somnolence [Recovered/Resolved]
  - Speech disorder [Recovered/Resolved]
  - Dysstasia [Recovered/Resolved]
  - Hallucination [Recovered/Resolved]
  - Nightmare [Recovered/Resolved]
